FAERS Safety Report 12312874 (Version 2)
Quarter: 2016Q2

REPORT INFORMATION
  Report Type: Report from Study
  Country: IN (occurrence: IN)
  Receive Date: 20160428
  Receipt Date: 20160509
  Transmission Date: 20160815
  Serious: Yes (Death, Other)
  Sender: FDA-Public Use
  Company Number: IN-BRISTOL-MYERS SQUIBB COMPANY-BMS-2016-032248

PATIENT
  Age: 40 Year
  Sex: Male

DRUGS (1)
  1. ENTECAVIR. [Suspect]
     Active Substance: ENTECAVIR
     Indication: HEPATITIS B
     Dosage: 0.5 MG, ONE TIME DOSE
     Route: 065
     Dates: start: 20140115, end: 20160329

REACTIONS (2)
  - Infection [Fatal]
  - Hepatitis [Fatal]
